FAERS Safety Report 9493820 (Version 3)
Quarter: 2014Q2

REPORT INFORMATION
  Report Type: Spontaneous
  Country: JP (occurrence: JP)
  Receive Date: 20130902
  Receipt Date: 20140416
  Transmission Date: 20141212
  Serious: Yes (Other)
  Sender: FDA-Public Use
  Company Number: PHHY2013JP094988

PATIENT
  Age: 63 Year
  Sex: Female

DRUGS (5)
  1. ZOMETA [Suspect]
     Indication: METASTASES TO BONE
     Dates: start: 200808, end: 20101130
  2. GEMZAR [Concomitant]
     Indication: BENIGN BONE NEOPLASM
     Route: 042
     Dates: start: 20100922
  3. NAVELBINE [Concomitant]
     Route: 042
     Dates: start: 20100922
  4. TS-1 [Concomitant]
     Indication: BENIGN BONE NEOPLASM
     Dosage: 80 MG, UNK
     Route: 048
     Dates: start: 20100922
  5. IRINOTECAN HYDROCHLORIDE [Concomitant]
     Route: 042
     Dates: start: 20100301

REACTIONS (12)
  - Osteonecrosis of jaw [Unknown]
  - Gingivitis [Recovering/Resolving]
  - Exposed bone in jaw [Unknown]
  - Dental fistula [Unknown]
  - Osteomyelitis [Unknown]
  - Gingival swelling [Unknown]
  - Pain in jaw [Unknown]
  - Gingival erythema [Unknown]
  - Tooth disorder [Unknown]
  - Hypoaesthesia oral [Unknown]
  - Scab [Unknown]
  - Bone swelling [Unknown]
